FAERS Safety Report 5162420-X (Version None)
Quarter: 2006Q4

REPORT INFORMATION
  Report Type: 
  Country: None (occurrence: None)
  Receive Date: 20061128
  Receipt Date: 20061128
  Transmission Date: 20070319
  Serious: Yes (Other)
  Sender: FDA-Public Use
  Company Number: None

PATIENT
  Age: 59 Year
  Sex: Male
  Weight: 87.5442 kg

DRUGS (15)
  1. MORPHINE SULFATE [Suspect]
     Indication: PAIN
     Dosage: PO Q12H
     Route: 048
     Dates: start: 20060803, end: 20060830
  2. TRAZODONE HCL [Concomitant]
  3. RANITIDINE [Concomitant]
  4. OMEPRAZOLE [Concomitant]
  5. GABAPENTIN [Concomitant]
  6. SIMVASTATIN [Concomitant]
  7. FLUNISOLIDE [Concomitant]
  8. ASPIRIN [Concomitant]
  9. DOCUSATE ENEMA [Concomitant]
  10. MICONAZOLE [Concomitant]
  11. LEVALBUTEROL HCL [Concomitant]
  12. FORMOTEROL [Concomitant]
  13. LORATADINE [Concomitant]
  14. FLUOXETINE [Concomitant]
  15. SOMA [Concomitant]

REACTIONS (2)
  - PRURITUS [None]
  - RASH [None]
